FAERS Safety Report 23146563 (Version 1)
Quarter: 2023Q4

REPORT INFORMATION
  Report Type: Spontaneous
  Country: TH (occurrence: TH)
  Receive Date: 20231105
  Receipt Date: 20231105
  Transmission Date: 20240110
  Serious: Yes (Life-Threatening, Hospitalization, Other)
  Sender: FDA-Public Use
  Company Number: TH-EPICPHARMA-TH-2023EPCLIT01689

PATIENT
  Sex: Female

DRUGS (7)
  1. LORAZEPAM [Suspect]
     Active Substance: LORAZEPAM
     Indication: Product used for unknown indication
     Route: 065
  2. ALPRAZOLAM [Suspect]
     Active Substance: ALPRAZOLAM
     Indication: Product used for unknown indication
     Route: 065
  3. OXAZEPAM [Concomitant]
     Active Substance: OXAZEPAM
     Indication: Product used for unknown indication
     Route: 065
  4. CLARITHROMYCIN [Concomitant]
     Active Substance: CLARITHROMYCIN
     Indication: Product used for unknown indication
     Route: 065
  5. TRAZODONE [Concomitant]
     Active Substance: TRAZODONE HYDROCHLORIDE
     Indication: Product used for unknown indication
     Route: 065
  6. NORDAZEPAM [Concomitant]
     Active Substance: NORDAZEPAM
     Indication: Product used for unknown indication
     Route: 065
  7. OMEPRAZOLE [Concomitant]
     Active Substance: OMEPRAZOLE
     Indication: Product used for unknown indication
     Route: 065

REACTIONS (8)
  - Hypertonia [Recovered/Resolved]
  - Hypothermia [Recovered/Resolved]
  - Reflexes abnormal [Recovered/Resolved]
  - Hyperreflexia [Recovered/Resolved]
  - Coma [Recovered/Resolved]
  - Hypopnoea [Recovered/Resolved]
  - Sedation [Recovered/Resolved]
  - Overdose [Unknown]
